FAERS Safety Report 14689748 (Version 1)
Quarter: 2018Q1

REPORT INFORMATION
  Report Type: Spontaneous
  Country: FR (occurrence: FR)
  Receive Date: 20180328
  Receipt Date: 20180328
  Transmission Date: 20180509
  Serious: Yes (Life-Threatening, Hospitalization)
  Sender: FDA-Public Use
  Company Number: FR-JNJFOC-20180335697

PATIENT
  Age: 59 Year
  Sex: Male
  Weight: 84 kg

DRUGS (8)
  1. BEVITINE [Concomitant]
     Active Substance: THIAMINE
     Route: 065
  2. DEXAMBUTOL [Concomitant]
     Active Substance: ETHAMBUTOL HYDROCHLORIDE
     Route: 065
  3. XARELTO [Suspect]
     Active Substance: RIVAROXABAN
     Indication: PULMONARY EMBOLISM
     Route: 048
  4. ESOMEPRAZOLE [Concomitant]
     Active Substance: ESOMEPRAZOLE
     Route: 065
  5. DAFALGAN [Concomitant]
     Active Substance: ACETAMINOPHEN
     Route: 065
  6. FEBUXOSTAT. [Concomitant]
     Active Substance: FEBUXOSTAT
     Route: 065
  7. ISONIAZIDE [Concomitant]
     Active Substance: ISONIAZID
     Route: 065
  8. MOXIFLOXACIN HYDROCHLORIDE. [Concomitant]
     Active Substance: MOXIFLOXACIN HYDROCHLORIDE
     Route: 065

REACTIONS (4)
  - Pneumonia aspiration [Recovering/Resolving]
  - Diabetes insipidus [Recovered/Resolved]
  - Meningorrhagia [Recovered/Resolved]
  - CNS ventriculitis [Recovering/Resolving]

NARRATIVE: CASE EVENT DATE: 20171111
